FAERS Safety Report 6264595-8 (Version None)
Quarter: 2009Q3

REPORT INFORMATION
  Report Type: 
  Country: None (occurrence: None)
  Receive Date: 20090710
  Receipt Date: 20090702
  Transmission Date: 20100115
  Serious: Yes (Hospitalization)
  Sender: FDA-Public Use
  Company Number: PHHO2009DE07179

PATIENT
  Sex: Male
  Weight: 87 kg

DRUGS (3)
  1. RAD 666 RAD+TAB [Suspect]
     Indication: RENAL TRANSPLANT
     Dosage: 0.5 MG, BID
     Route: 048
     Dates: start: 20090201, end: 20090610
  2. MYFORTIC [Suspect]
     Indication: RENAL TRANSPLANT
     Dosage: OPEN-LABEL
     Route: 048
     Dates: start: 20090201, end: 20090610
  3. URBASON [Suspect]
     Indication: RENAL TRANSPLANT
     Dosage: 360 MG, BID
     Route: 048
     Dates: start: 20090201, end: 20090610

REACTIONS (3)
  - PNEUMONIA [None]
  - RESPIRATORY FAILURE [None]
  - TRANSPLANT FAILURE [None]
